FAERS Safety Report 9684408 (Version 2)
Quarter: 2013Q4

REPORT INFORMATION
  Report Type: Spontaneous
  Country: US (occurrence: US)
  Receive Date: 20131112
  Receipt Date: 20131126
  Transmission Date: 20140711
  Serious: No
  Sender: FDA-Public Use
  Company Number: US-PFIZER INC-2013319988

PATIENT
  Age: 63 Year
  Sex: Female
  Weight: 75.74 kg

DRUGS (1)
  1. GABAPENTIN [Suspect]
     Indication: NEUROPATHY PERIPHERAL
     Dosage: 400 MG, 2X/DAY
     Dates: end: 201310

REACTIONS (3)
  - Off label use [Unknown]
  - Vision blurred [Unknown]
  - Impaired driving ability [Unknown]
